FAERS Safety Report 6074724-7 (Version None)
Quarter: 2009Q1

REPORT INFORMATION
  Report Type: 
  Country: None (occurrence: None)
  Receive Date: 20090212
  Receipt Date: 20090210
  Transmission Date: 20090719
  Serious: Yes (Death, Hospitalization)
  Sender: FDA-Public Use
  Company Number: US-JNJFOC-20080401469

PATIENT
  Sex: Male
  Weight: 76.2 kg

DRUGS (2)
  1. FENTANYL TRANSDERMAL SYSTEM [Suspect]
     Indication: RHEUMATOID ARTHRITIS
     Route: 062
  2. FENTANYL TRANSDERMAL SYSTEM [Suspect]
     Indication: PAIN
     Route: 062

REACTIONS (5)
  - COMA [None]
  - DEATH [None]
  - GAIT DISTURBANCE [None]
  - INCONTINENCE [None]
  - WITHDRAWAL SYNDROME [None]
